FAERS Safety Report 10052869 (Version 1)
Quarter: 2014Q2

REPORT INFORMATION
  Report Type: Spontaneous
  Country: FR (occurrence: FR)
  Receive Date: 20140402
  Receipt Date: 20140402
  Transmission Date: 20141212
  Serious: Yes (Life-Threatening)
  Sender: FDA-Public Use
  Company Number: FR-PFIZER INC-2014088060

PATIENT
  Age: 63 Year
  Sex: Male

DRUGS (8)
  1. TAHOR [Suspect]
     Dosage: 80 MG, 1X/DAY
     Route: 048
  2. VENLAFAXINE HCL [Suspect]
     Dosage: 37.5 MG, 1X/DAY
     Route: 048
  3. AMLODIPINE [Suspect]
     Dosage: 5 MG, 1X/DAY
     Route: 048
  4. SPIRIVA [Suspect]
     Route: 055
  5. GLIVEC [Suspect]
     Dosage: 400 MG, 1X/DAY
     Route: 048
     Dates: start: 20111230
  6. PROCORALAN [Suspect]
     Dosage: 7.5 MG, 2X/DAY
     Route: 048
     Dates: start: 20120102
  7. PREVISCAN [Suspect]
     Dosage: ACCORDING TO INR
     Route: 048
  8. SERETIDE [Suspect]
     Route: 055

REACTIONS (1)
  - Large cell lung cancer metastatic [Not Recovered/Not Resolved]
